FAERS Safety Report 8119523-7 (Version None)
Quarter: 2011Q4

REPORT INFORMATION
  Report Type: 
  Country: None (occurrence: None)
  Receive Date: 20111227
  Receipt Date: 20111116
  Transmission Date: 20120403
  Serious: No
  Sender: FDA-Public Use
  Company Number: PHEH2011US05898

PATIENT
  Age: 36 Year
  Sex: Female
  Weight: 53.1 kg

DRUGS (9)
  1. GILENYA [Suspect]
     Indication: RELAPSING-REMITTING MULTIPLE SCLEROSIS
     Dosage: 0.5 MG, QD, ORAL
     Route: 048
     Dates: start: 20110930, end: 20111101
  2. AMANTADINE HCL [Concomitant]
  3. GABAPENTNI (GABAPENTIN) [Concomitant]
  4. TOPAMAX [Concomitant]
  5. WELLBUTRIN SR [Concomitant]
  6. XANAX [Concomitant]
  7. BUSPAR [Concomitant]
  8. PROPANEX [Concomitant]
  9. ZIOIRECT [Concomitant]

REACTIONS (4)
  - PAIN [None]
  - CHEST PAIN [None]
  - WHITE BLOOD CELL COUNT DECREASED [None]
  - MALAISE [None]
